FAERS Safety Report 7245268-1 (Version None)
Quarter: 2011Q1

REPORT INFORMATION
  Report Type: 
  Country: None (occurrence: None)
  Receive Date: 20110126
  Receipt Date: 20110121
  Transmission Date: 20110831
  Serious: Yes (Hospitalization)
  Sender: FDA-Public Use
  Company Number: US-BRISTOL-MYERS SQUIBB COMPANY-15471089

PATIENT
  Age: 43 Year
  Sex: Female
  Weight: 78 kg

DRUGS (5)
  1. IXABEPILONE [Suspect]
     Indication: BREAST CANCER METASTATIC
     Dosage: ON HOLD 03JAN11
     Dates: start: 20101228, end: 20101228
  2. CARBOPLATIN [Suspect]
     Indication: BREAST CANCER METASTATIC
     Dosage: ON HOLD 03JAN11
     Dates: start: 20101228, end: 20101228
  3. LORTAB [Concomitant]
     Indication: PAIN
     Route: 048
     Dates: start: 20101129
  4. FENTANYL-100 [Concomitant]
     Indication: PAIN
  5. PHENERGAN [Concomitant]
     Indication: NAUSEA
     Route: 048
     Dates: start: 20101228

REACTIONS (4)
  - PAIN [None]
  - NAUSEA [None]
  - VOMITING [None]
  - ATRIAL FIBRILLATION [None]
